FAERS Safety Report 20485907 (Version 2)
Quarter: 2022Q1

REPORT INFORMATION
  Report Type: Spontaneous
  Country: CO (occurrence: CO)
  Receive Date: 20220217
  Receipt Date: 20220314
  Transmission Date: 20220423
  Serious: Yes (Other)
  Sender: FDA-Public Use
  Company Number: CO-PFIZER INC-202200229353

PATIENT
  Age: 58 Year
  Sex: Female

DRUGS (1)
  1. PALBOCICLIB [Suspect]
     Active Substance: PALBOCICLIB
     Dosage: 125 MG, TAKE FOR 21 DAYS AND REST FOR TWO WEEKS
     Route: 048
     Dates: start: 20211126

REACTIONS (4)
  - Bradykinesia [Not Recovered/Not Resolved]
  - Off label use [Unknown]
  - Wrong dosage formulation [Not Recovered/Not Resolved]
  - Calcium deficiency [Unknown]

NARRATIVE: CASE EVENT DATE: 20211126
